FAERS Safety Report 23510373 (Version 1)
Quarter: 2024Q1

REPORT INFORMATION
  Report Type: Report from Study
  Country: CA (occurrence: CA)
  Receive Date: 20240211
  Receipt Date: 20240211
  Transmission Date: 20240410
  Serious: Yes (Hospitalization, Other)
  Sender: FDA-Public Use
  Company Number: CA-ABBVIE-5629715

PATIENT
  Sex: Male

DRUGS (1)
  1. RINVOQ [Suspect]
     Active Substance: UPADACITINIB
     Indication: Ankylosing spondylitis
     Route: 048
     Dates: start: 20210630

REACTIONS (9)
  - Deafness unilateral [Unknown]
  - Eye disorder [Unknown]
  - Facial paralysis [Recovered/Resolved]
  - Post herpetic neuralgia [Unknown]
  - Facial pain [Unknown]
  - Ear pain [Unknown]
  - Eye pain [Unknown]
  - Herpes zoster disseminated [Unknown]
  - Herpes zoster oticus [Unknown]
